FAERS Safety Report 9181706 (Version 1)
Quarter: 2013Q1

REPORT INFORMATION
  Report Type: Spontaneous
  Country: US (occurrence: US)
  Receive Date: 20130322
  Receipt Date: 20130322
  Transmission Date: 20140127
  Serious: No
  Sender: FDA-Public Use
  Company Number: US-PFIZER INC-2013090754

PATIENT
  Sex: Female

DRUGS (2)
  1. PANTOPRAZOLE [Suspect]
     Dosage: UNK
  2. PREDNISONE [Concomitant]
     Dosage: UNK

REACTIONS (14)
  - Limb discomfort [Unknown]
  - Muscle spasms [Unknown]
  - Dry mouth [Unknown]
  - Abdominal distension [Unknown]
  - Headache [Unknown]
  - Diarrhoea [Unknown]
  - Gastrooesophageal reflux disease [Unknown]
  - Alopecia [Unknown]
  - Agitation [Unknown]
  - Throat irritation [Unknown]
  - Myalgia [Unknown]
  - Pain in extremity [Unknown]
  - Heart rate increased [Unknown]
  - Rash [Unknown]
